FAERS Safety Report 20182858 (Version 2)
Quarter: 2021Q4

REPORT INFORMATION
  Report Type: Report from Study
  Country: US (occurrence: None)
  Receive Date: 20211214
  Receipt Date: 20211216
  Transmission Date: 20220303
  Serious: Yes (Death, Hospitalization)
  Sender: FDA-Public Use
  Company Number: US-ROCHE-2977519

PATIENT
  Age: 82 Year
  Sex: Male
  Weight: 77.180 kg

DRUGS (31)
  1. DORNASE ALFA [Suspect]
     Active Substance: DORNASE ALFA
     Indication: COVID-19
     Dates: start: 20211119, end: 20211126
  2. DORNASE ALFA [Suspect]
     Active Substance: DORNASE ALFA
     Indication: Acute respiratory distress syndrome
  3. CATHFLO ACTIVASE [Concomitant]
     Active Substance: ALTEPLASE
  4. PRECEDEX [Concomitant]
     Active Substance: DEXMEDETOMIDINE HYDROCHLORIDE
     Dates: start: 20210612
  5. NEO-SYNEPHRINE [Concomitant]
     Active Substance: PHENYLEPHRINE HYDROCHLORIDE
     Dates: start: 20210612
  6. SUBLIMAZE [Concomitant]
     Active Substance: FENTANYL CITRATE
     Dosage: SUBSEQUENT DOSE 11/DEC/2021- 12/DEC/2021
     Dates: start: 20211206
  7. ALBUMIN HUMAN [Concomitant]
     Active Substance: ALBUMIN HUMAN
     Dates: start: 20211206
  8. SODIUM CHLORIDE [Concomitant]
     Active Substance: SODIUM CHLORIDE
     Dosage: SUBSEQUENT DOSE ON 11/DEC/2021- 12/DEC/2021
     Dates: start: 20211109
  9. SOLU-MEDROL [Concomitant]
     Active Substance: METHYLPREDNISOLONE SODIUM SUCCINATE
     Dates: start: 20211206
  10. XARELTO [Concomitant]
     Active Substance: RIVAROXABAN
     Dates: start: 20211130
  11. ULTRAM [Concomitant]
     Active Substance: TRAMADOL HYDROCHLORIDE
     Dates: start: 20211206
  12. LOPRESSOR [Concomitant]
     Active Substance: METOPROLOL TARTRATE
     Dates: start: 20211124
  13. LASIX [Concomitant]
     Active Substance: FUROSEMIDE
     Dates: start: 20211206
  14. ALBUTEROL [Concomitant]
     Active Substance: ALBUTEROL
     Dates: start: 20211205
  15. ATIVAN [Concomitant]
     Active Substance: LORAZEPAM
     Dates: start: 20211206
  16. AMIDATE [Concomitant]
     Active Substance: ETOMIDATE
     Dates: start: 20211206
  17. ANECTINE [Concomitant]
     Active Substance: SUCCINYLCHOLINE CHLORIDE
     Dates: start: 20211206
  18. MORPHINE [Concomitant]
     Active Substance: MORPHINE
     Dates: start: 20211206
  19. NPH INSULIN [Concomitant]
     Active Substance: INSULIN BEEF
     Dates: start: 20211209
  20. SENNA LEAF [Concomitant]
     Active Substance: SENNA LEAF
     Dates: start: 20211207
  21. DOCUSATE [Concomitant]
     Active Substance: DOCUSATE
     Dates: start: 20211207
  22. INSULIN LISPRO [Concomitant]
     Active Substance: INSULIN LISPRO
     Dates: start: 20211207
  23. PHYTONADIONE [Concomitant]
     Active Substance: PHYTONADIONE
     Dates: start: 20211209
  24. CEFEPRIME [Concomitant]
     Dates: start: 20211206
  25. ERGOCALCIFEROL [Concomitant]
     Active Substance: ERGOCALCIFEROL
     Dates: start: 20211209
  26. ASPIRIN [Concomitant]
     Active Substance: ASPIRIN
     Dates: start: 20211201
  27. PANTOPRAZOLE [Concomitant]
     Active Substance: PANTOPRAZOLE
     Dates: start: 20211207
  28. POLYETHYLENE GLYCOL [Concomitant]
     Active Substance: POLYETHYLENE GLYCOL
     Dates: start: 20211207
  29. LORAZEPAM [Concomitant]
     Active Substance: LORAZEPAM
     Dosage: 12/DEC/2021
  30. HYDROMORPHONE [Concomitant]
     Active Substance: HYDROMORPHONE
     Dosage: 12/DEC/2021
  31. GLYCOPYRROLATE [Concomitant]
     Active Substance: GLYCOPYRROLATE
     Dosage: 12DEC2021

REACTIONS (6)
  - Acute respiratory failure [Unknown]
  - Pneumonia bacterial [Unknown]
  - Anaemia [Unknown]
  - Thrombocytopenia [Unknown]
  - Ischaemic stroke [Unknown]
  - Death [Fatal]

NARRATIVE: CASE EVENT DATE: 20211206
